FAERS Safety Report 8845754 (Version 3)
Quarter: 2012Q4

REPORT INFORMATION
  Report Type: 
  Country: FR (occurrence: FR)
  Receive Date: 20121017
  Receipt Date: 20121126
  Transmission Date: 20130627
  Serious: Yes (Other)
  Sender: FDA-Public Use
  Company Number: FR-PFIZER INC-2012254298

PATIENT
  Age: 53 Year
  Sex: Male
  Weight: 97.5 kg

DRUGS (20)
  1. LYRICA [Suspect]
     Dosage: 2 tablets in the morning and 3 in the evening
     Route: 048
     Dates: start: 20120412
  2. LYRICA [Suspect]
     Dosage: 150 mg, 2x/day
     Route: 048
  3. BISOCE [Concomitant]
     Indication: HYPERTENSION ARTERIAL
     Dosage: 2.5 mg, 1x/day
     Route: 048
     Dates: start: 201111
  4. OMACOR [Concomitant]
     Dosage: 1 DF, 1x/day
     Route: 048
     Dates: start: 20120412
  5. LOVENOX [Concomitant]
     Dosage: 0.4 mg, 1x/day
     Route: 058
     Dates: start: 20120416
  6. CRESTOR [Concomitant]
     Dosage: 5 mg, 1x/day
  7. CYMBALTA [Concomitant]
     Dosage: 60 mg, 2x/day
  8. DOLIPRANE [Concomitant]
     Dosage: UNK
  9. DUPHALAC [Concomitant]
     Dosage: 3 DF, 1x/day
  10. FLUOXETINE [Concomitant]
     Dosage: 20 mg/5 ml in the morning
  11. KARDEGIC [Concomitant]
     Dosage: 75 mg, 1x/day
     Dates: start: 201110
  12. LAROXYL [Concomitant]
     Dosage: 50 mg, 3x/day
  13. OXYCONTIN [Concomitant]
     Dosage: 20 mg, 2x/day
     Dates: start: 201204
  14. OXYNORM [Concomitant]
     Indication: PAIN
     Dosage: 5 mg, as needed
     Dates: start: 201204
  15. PARIET [Concomitant]
     Dosage: 1 DF, 1x/day
     Dates: start: 201110
  16. AUGMENTIN [Concomitant]
     Dosage: 1 g, 3x/day
  17. AMAREL [Concomitant]
     Dosage: 4 mg, 1x/day
     Dates: start: 201110
  18. GLUCOR [Concomitant]
     Dosage: 100 mg, 3x/day
     Dates: start: 201110
  19. METFORMIN [Concomitant]
     Dosage: 1000 mg, 2x/day
     Dates: start: 201110
  20. METFORMIN [Concomitant]
     Dosage: 850 mg, 2x/day

REACTIONS (5)
  - Rash maculo-papular [Recovered/Resolved]
  - Rash vesicular [Recovered/Resolved]
  - Pruritus [Recovered/Resolved]
  - Urinary tract infection [Unknown]
  - Eczema [Not Recovered/Not Resolved]
